FAERS Safety Report 4948541-2 (Version None)
Quarter: 2006Q1

REPORT INFORMATION
  Report Type: 
  Country: None (occurrence: None)
  Receive Date: 20060320
  Receipt Date: 20050613
  Transmission Date: 20060701
  Serious: Yes (Hospitalization, Other)
  Sender: FDA-Public Use
  Company Number: US-MERCK-0506USA02427

PATIENT
  Age: 65 Year
  Sex: Female
  Weight: 70 kg

DRUGS (3)
  1. VIOXX [Suspect]
     Indication: OSTEOARTHRITIS
     Route: 048
     Dates: start: 20000301
  2. VIOXX [Suspect]
     Route: 048
     Dates: end: 20040407
  3. TYLENOL (CAPLET) [Concomitant]
     Route: 065

REACTIONS (27)
  - ABDOMINAL PAIN [None]
  - ALLERGIC SINUSITIS [None]
  - AMNESIA [None]
  - ANAEMIA [None]
  - ARTERIOSCLEROSIS [None]
  - ARTHROPATHY [None]
  - BLOOD CHOLESTEROL INCREASED [None]
  - CEREBRAL ARTERY STENOSIS [None]
  - CEREBRAL INFARCTION [None]
  - CEREBROVASCULAR ACCIDENT [None]
  - DEHYDRATION [None]
  - DIABETES MELLITUS [None]
  - DIZZINESS [None]
  - DIZZINESS POSTURAL [None]
  - HEADACHE [None]
  - HYPERLIPIDAEMIA [None]
  - HYPOTHYROIDISM [None]
  - INSOMNIA [None]
  - MYALGIA [None]
  - NAUSEA [None]
  - SINOBRONCHITIS [None]
  - SLEEP APNOEA SYNDROME [None]
  - STRESS INCONTINENCE [None]
  - THROAT TIGHTNESS [None]
  - TRANSIENT ISCHAEMIC ATTACK [None]
  - URINARY TRACT INFECTION [None]
  - VERTIGO [None]
